FAERS Safety Report 8492805-5 (Version None)
Quarter: 2012Q3

REPORT INFORMATION
  Report Type: 
  Country: None (occurrence: None)
  Receive Date: 20120706
  Receipt Date: 20120704
  Transmission Date: 20120928
  Serious: Yes (Death, Hospitalization)
  Sender: FDA-Public Use
  Company Number: IT-CELGENEUS-083-C5013-10121789

PATIENT
  Sex: Male
  Weight: 75 kg

DRUGS (5)
  1. LENALIDOMIDE [Suspect]
     Dosage: 10 MILLIGRAM
     Route: 048
     Dates: start: 20071009, end: 20100404
  2. METOCLOPRAMIDE [Concomitant]
     Indication: NAUSEA
     Dosage: 20 MILLIGRAM
     Route: 041
     Dates: start: 20101028, end: 20101106
  3. LENALIDOMIDE [Suspect]
     Indication: MULTIPLE MYELOMA
     Dosage: 7.5 MILLIGRAM
     Route: 048
     Dates: start: 20100413, end: 20101012
  4. PREDNISONE [Suspect]
     Indication: MULTIPLE MYELOMA
     Dosage: 2 MILLIGRAM/KILOGRAM
     Route: 065
     Dates: start: 20071009, end: 20080606
  5. MELPHALAN HYDROCHLORIDE [Suspect]
     Indication: MULTIPLE MYELOMA
     Dosage: .18 MILLIGRAM/KILOGRAM
     Route: 048
     Dates: start: 20071009, end: 20080606

REACTIONS (1)
  - COLON CANCER STAGE IV [None]
